FAERS Safety Report 5911135-6 (Version None)
Quarter: 2008Q4

REPORT INFORMATION
  Report Type: 
  Country: None (occurrence: None)
  Receive Date: 20081007
  Receipt Date: 20080225
  Transmission Date: 20090506
  Serious: No
  Sender: FDA-Public Use
  Company Number: US-BRISTOL-MYERS SQUIBB COMPANY-14089445

PATIENT
  Age: 63 Year
  Sex: Female

DRUGS (8)
  1. AVAPRO [Suspect]
     Indication: BLOOD PRESSURE INCREASED
     Dates: start: 20070701
  2. METFORMIN HCL [Suspect]
     Dates: end: 20061201
  3. METOPROLOL TARTRATE [Concomitant]
  4. GLYBURIDE [Concomitant]
  5. HYDROCHLOROTHIAZIDE [Concomitant]
  6. ESTRADIOL [Concomitant]
  7. LORAZEPAM [Concomitant]
  8. JANUVIA [Concomitant]
     Dosage: ON 25-DEC-2007 JANUVIA WAS PRESCRIBED
     Dates: start: 20071225

REACTIONS (2)
  - BLOOD PRESSURE INCREASED [None]
  - GASTROINTESTINAL DISORDER [None]
